FAERS Safety Report 10021730 (Version 1)
Quarter: 2014Q1

REPORT INFORMATION
  Report Type: Report from Study
  Country: CN (occurrence: CN)
  Receive Date: 20140319
  Receipt Date: 20140319
  Transmission Date: 20141002
  Serious: Yes (Other)
  Sender: FDA-Public Use
  Company Number: CN-BAXTER-2014BAX014330

PATIENT
  Sex: 0

DRUGS (7)
  1. ENDOXAN 1G [Suspect]
     Indication: STEM CELL TRANSPLANT
     Dosage: 1.8 G/M2 ON DAYS -4 AND -3
     Route: 065
  2. ENDOXAN 1G [Suspect]
     Dosage: 1.8 G/M2 ON DAYS -4 AND -3
     Route: 065
  3. BUSULPHAN [Suspect]
     Indication: STEM CELL TRANSPLANT
     Dosage: ON DAYS -7 TO -5
     Route: 048
  4. CYTARABINE [Suspect]
     Indication: STEM CELL TRANSPLANT
     Dosage: 4 G/M2 ON DAYS -9 AND -8
     Route: 065
  5. CYTARABINE [Suspect]
     Dosage: 4 G/M2 ON DAYS -6 AND -5
     Route: 065
  6. ME-CCNU [Suspect]
     Indication: STEM CELL TRANSPLANT
     Dosage: ON DAY -10
     Route: 065
  7. ME-CCNU [Suspect]
     Dosage: ON DAYS -8
     Route: 065

REACTIONS (1)
  - Chronic graft versus host disease [Unknown]
